FAERS Safety Report 17123990 (Version 1)
Quarter: 2019Q4

REPORT INFORMATION
  Report Type: Spontaneous
  Country: US (occurrence: US)
  Receive Date: 20191206
  Receipt Date: 20191206
  Transmission Date: 20200122
  Serious: No
  Sender: FDA-Public Use
  Company Number: US-ROCHE-2378879

PATIENT
  Age: 30 Year
  Sex: Female

DRUGS (1)
  1. OCREVUS [Suspect]
     Active Substance: OCRELIZUMAB
     Indication: MULTIPLE SCLEROSIS
     Dosage: RECEIVED 300 MG IV X 2 WITH FIRST DOSE THEN 3RD INFUSION OF 600 MG IV-HOWEVER?^GOT MOST BUT NOT ALL^
     Route: 042

REACTIONS (5)
  - Pruritus [Unknown]
  - Hot flush [Unknown]
  - Drug intolerance [Unknown]
  - Chest discomfort [Unknown]
  - Erythema [Unknown]
